FAERS Safety Report 5483478-4 (Version None)
Quarter: 2007Q4

REPORT INFORMATION
  Report Type: 
  Country: None (occurrence: None)
  Receive Date: 20071012
  Receipt Date: 20070928
  Transmission Date: 20080405
  Serious: Yes (Hospitalization)
  Sender: FDA-Public Use
  Company Number: JP-BRISTOL-MYERS SQUIBB COMPANY-13231535

PATIENT
  Age: 61 Year
  Sex: Male

DRUGS (6)
  1. ENDOXAN [Suspect]
     Indication: SCLERODERMA
     Route: 041
     Dates: start: 20040825, end: 20041206
  2. BAKTAR [Suspect]
     Indication: ANTIFUNGAL PROPHYLAXIS
     Route: 048
     Dates: start: 20041102, end: 20041130
  3. PREDNISONE [Concomitant]
     Dates: start: 20040812
  4. ZANTAC [Concomitant]
     Dates: start: 20040812
  5. TERSIGAN [Concomitant]
     Dates: start: 20040824
  6. MEPTIN [Concomitant]
     Dates: start: 20040824

REACTIONS (1)
  - DRUG RASH WITH EOSINOPHILIA AND SYSTEMIC SYMPTOMS [None]
